FAERS Safety Report 20568858 (Version 1)
Quarter: 2022Q1

REPORT INFORMATION
  Report Type: Spontaneous
  Country: US (occurrence: US)
  Receive Date: 20220308
  Receipt Date: 20220308
  Transmission Date: 20220424
  Serious: Yes (Hospitalization)
  Sender: FDA-Public Use
  Company Number: US-Fresenius Medical Care Renal Therapies Group-FMC-2203-000359

PATIENT
  Age: 88 Year
  Sex: Male
  Weight: 78 kg

DRUGS (17)
  1. DELFLEX WITH DEXTROSE 1.5% LOW MAGNESIUM LOW CALCIUM [Suspect]
     Active Substance: CALCIUM CHLORIDE\DEXTROSE\MAGNESIUM CHLORIDE\SODIUM CHLORIDE\SODIUM LACTATE
     Indication: End stage renal disease
     Dosage: 2300 ML FILL VOLUME FOR 5 CYCLES, NO LAST FILL OR NO DAYTIME EXCHANGE
     Route: 033
  2. DELFLEX WITH DEXTROSE 2.5% LOW MAGNESIUM LOW CALCIUM [Suspect]
     Active Substance: CALCIUM CHLORIDE\DEXTROSE\MAGNESIUM CHLORIDE\SODIUM CHLORIDE\SODIUM LACTATE
     Indication: End stage renal disease
     Dosage: 2300 ML FILL VOLUME FOR 5 CYCLES, NO LAST FILL OR NO DAYTIME EXCHANGE
     Route: 033
  3. ALLOPURINOL [Concomitant]
     Active Substance: ALLOPURINOL
  4. CALCITRIOL [Concomitant]
     Active Substance: CALCITRIOL
  5. CALCIUM ACETATE [Concomitant]
     Active Substance: CALCIUM ACETATE
  6. CEFTAZIDIME [Concomitant]
     Active Substance: CEFTAZIDIME
  7. CLONIDINE [Concomitant]
     Active Substance: CLONIDINE
  8. ELIQUIS [Concomitant]
     Active Substance: APIXABAN
  9. GEMFIBROZIL [Concomitant]
     Active Substance: GEMFIBROZIL
  10. LEVOTHYROXINE [Concomitant]
     Active Substance: LEVOTHYROXINE
  11. LIQUACEL [Concomitant]
  12. METOPROLOL TARTRATE [Concomitant]
     Active Substance: METOPROLOL TARTRATE
  13. MUPIROCIN CALCIUM [Concomitant]
     Active Substance: MUPIROCIN CALCIUM
  14. SODIUM BICARBONATE [Concomitant]
     Active Substance: SODIUM BICARBONATE
  15. TAMSULOSIN [Concomitant]
     Active Substance: TAMSULOSIN
  16. VANCOMYCIN [Concomitant]
     Active Substance: VANCOMYCIN
  17. VELPHORO [Concomitant]
     Active Substance: SUCROFERRIC OXYHYDROXIDE

REACTIONS (2)
  - Atrial fibrillation [Recovered/Resolved]
  - Dehydration [Recovered/Resolved]

NARRATIVE: CASE EVENT DATE: 20220218
